FAERS Safety Report 4697362-7 (Version None)
Quarter: 2005Q2

REPORT INFORMATION
  Report Type: 
  Country: None (occurrence: None)
  Receive Date: 20050621
  Receipt Date: 20050314
  Transmission Date: 20051028
  Serious: Yes (Other)
  Sender: FDA-Public Use
  Company Number: 2005S1000132

PATIENT
  Age: 64 Year
  Sex: Male

DRUGS (4)
  1. CUBICIN [Suspect]
     Indication: WOUND INFECTION STAPHYLOCOCCAL
     Dosage: 6 MG/KG; Q24H
  2. VANCOMYCIN [Concomitant]
  3. RIFAMPIN [Concomitant]
  4. LINEZOLID [Concomitant]

REACTIONS (3)
  - MYOCARDIAL INFARCTION [None]
  - SEROMA [None]
  - WOUND INFECTION STAPHYLOCOCCAL [None]
